FAERS Safety Report 4884943-0 (Version None)
Quarter: 2006Q1

REPORT INFORMATION
  Report Type: 
  Country: None (occurrence: None)
  Receive Date: 20060117
  Receipt Date: 20060105
  Transmission Date: 20060701
  Serious: Yes (Other)
  Sender: FDA-Public Use
  Company Number: 2006004350

PATIENT
  Sex: Female

DRUGS (9)
  1. GLUCOTROL XL [Suspect]
     Indication: ILL-DEFINED DISORDER
     Dates: start: 19960101
  2. DETROL [Suspect]
     Indication: BLADDER DISORDER
     Dates: start: 19960101
  3. DETROL LA [Suspect]
     Indication: BLADDER DISORDER
     Dosage: 4 MG (4MG, 1 IN 1 D); ORAL
     Route: 048
     Dates: start: 20051212
  4. AVANDIA [Concomitant]
  5. GLUCOPHAGE XR (METFORMIN HYDROCHLORIDE) [Concomitant]
  6. NEXIUM [Concomitant]
  7. ZOCOR [Concomitant]
  8. SYNTHROID [Concomitant]
  9. TOPROL-XL [Concomitant]

REACTIONS (10)
  - BLOOD CHOLESTEROL INCREASED [None]
  - DIABETIC COMPLICATION [None]
  - DYSURIA [None]
  - GASTROOESOPHAGEAL REFLUX DISEASE [None]
  - HYPERTENSION [None]
  - HYPOTHYROIDISM [None]
  - METASTATIC CARCINOMA OF THE BLADDER [None]
  - URETHRAL DISORDER [None]
  - URINARY RETENTION [None]
  - VAGINAL DISORDER [None]
